FAERS Safety Report 9697012 (Version 3)
Quarter: 2013Q4

REPORT INFORMATION
  Report Type: Spontaneous
  Country: US (occurrence: US)
  Receive Date: 20131119
  Receipt Date: 20131202
  Transmission Date: 20140711
  Serious: No
  Sender: FDA-Public Use
  Company Number: US-AMGEN-USASP2013070961

PATIENT
  Age: 61 Year
  Sex: Female
  Weight: 68.48 kg

DRUGS (10)
  1. PROLIA [Suspect]
     Indication: OSTEOPOROSIS POSTMENOPAUSAL
     Dosage: 60 MG, Q6MO
     Route: 058
     Dates: start: 20120827
  2. CALCIUM VIT D [Concomitant]
     Dosage: UNK UNK, QD
     Route: 048
  3. FISH OIL [Concomitant]
  4. SIMVASTATIN [Concomitant]
     Indication: LIPIDS
     Dosage: 10 MG, QD
     Route: 048
  5. CELEBRA [Concomitant]
     Indication: ARTHRITIS
     Dosage: 200 MG, UNK
     Route: 048
  6. SUMATRIPTAN SUCCINATE [Concomitant]
     Indication: MIGRAINE
     Dosage: 50 MG, UNK
     Route: 048
  7. DIOVAN [Concomitant]
     Indication: HYPERTENSION
     Dosage: 60 MG, UNK
     Route: 048
  8. TOPAMAX [Concomitant]
     Dosage: 100 MG, UNK
     Route: 048
  9. EFFEXOR [Concomitant]
     Indication: PAIN
     Dosage: 375 MG, UNK
     Route: 048
  10. ACIPHEX [Concomitant]
     Indication: REFLUX GASTRITIS
     Dosage: 20 MG, UNK
     Route: 048

REACTIONS (3)
  - Osteoarthritis [Unknown]
  - Pain [Unknown]
  - Arthralgia [Unknown]
